FAERS Safety Report 19237806 (Version 1)
Quarter: 2021Q2

REPORT INFORMATION
  Report Type: Spontaneous
  Country: US (occurrence: US)
  Receive Date: 20210510
  Receipt Date: 20210510
  Transmission Date: 20210717
  Serious: No
  Sender: FDA-Public Use
  Company Number: US-BAUSCH-BL-2021-014965

PATIENT
  Age: 67 Year
  Sex: Female
  Weight: 47.67 kg

DRUGS (3)
  1. DEXAMETHASONE SODIUM PHOSPHATE OPHTHALMIC SOLUTION USP 0.1% [Suspect]
     Active Substance: DEXAMETHASONE SODIUM PHOSPHATE
     Indication: INFLAMMATION
     Dosage: (THREE DROPS IN EACH EAR TWICE DAILY)
     Route: 001
     Dates: start: 20210412, end: 20210424
  2. FLONASE [Concomitant]
     Active Substance: FLUTICASONE PROPIONATE
     Indication: PRODUCT USED FOR UNKNOWN INDICATION
     Route: 045
  3. DEXAMETHASONE SODIUM PHOSPHATE OPHTHALMIC SOLUTION USP 0.1% [Suspect]
     Active Substance: DEXAMETHASONE SODIUM PHOSPHATE
     Indication: BLOOD DISORDER
     Dosage: HE DID NOT USE ANY DROPS FROM THIS BOTTLE, BUT SHE STATED IT ALSO ^SMELLED LIKE LILACS^
     Route: 001

REACTIONS (4)
  - Drug ineffective [Unknown]
  - Hypoacusis [Not Recovered/Not Resolved]
  - Ear pain [Not Recovered/Not Resolved]
  - Product odour abnormal [Unknown]

NARRATIVE: CASE EVENT DATE: 202104
